FAERS Safety Report 25926508 (Version 1)
Quarter: 2025Q4

REPORT INFORMATION
  Report Type: Spontaneous
  Country: US (occurrence: None)
  Receive Date: 20251014
  Receipt Date: 20251014
  Transmission Date: 20260118
  Serious: Yes (Other)
  Sender: FDA-CTU
  Company Number: None

PATIENT
  Age: 66 Year
  Sex: Female
  Weight: 56.7 kg

DRUGS (4)
  1. AMOXICILLIN\CLAVULANATE POTASSIUM [Suspect]
     Active Substance: AMOXICILLIN\CLAVULANATE POTASSIUM
     Indication: Animal bite
     Dosage: FREQUENCY : TWICE A DAY;?
     Route: 048
     Dates: start: 20231031, end: 20231105
  2. DIOVAN [Concomitant]
     Active Substance: VALSARTAN
  3. LYRICA [Concomitant]
     Active Substance: PREGABALIN
  4. UBRELVY [Concomitant]
     Active Substance: UBROGEPANT

REACTIONS (1)
  - Renal impairment [None]

NARRATIVE: CASE EVENT DATE: 20231031
